FAERS Safety Report 5692335-X (Version None)
Quarter: 2008Q2

REPORT INFORMATION
  Report Type: 
  Country: None (occurrence: None)
  Receive Date: 20080328
  Receipt Date: 20071212
  Transmission Date: 20081010
  Serious: Yes (Other)
  Sender: FDA-Public Use
  Company Number: US-WYE-H01096207

PATIENT
  Age: 65 Year
  Sex: Male
  Weight: 64.47 kg

DRUGS (9)
  1. TORISEL [Suspect]
     Indication: METASTATIC RENAL CELL CARCINOMA
     Dosage: 25 MG 1X PER 1 WK, INTRAVENOUS
     Route: 042
     Dates: start: 20071106, end: 20071106
  2. ZOFRAN [Concomitant]
  3. COMPAZINE [Concomitant]
  4. ATIVAN [Concomitant]
  5. DECADRON [Concomitant]
  6. PROZAC [Concomitant]
  7. OMEPRAZOLE [Concomitant]
  8. LORATADINE [Concomitant]
  9. MUCINEX [Concomitant]

REACTIONS (6)
  - ABDOMINAL PAIN UPPER [None]
  - BACK PAIN [None]
  - HYPERSENSITIVITY [None]
  - HYPERTENSION [None]
  - MUSCULOSKELETAL CHEST PAIN [None]
  - NAUSEA [None]
